FAERS Safety Report 9238425 (Version 1)
Quarter: 2013Q2

REPORT INFORMATION
  Report Type: Spontaneous
  Country: US (occurrence: None)
  Receive Date: 20130416
  Receipt Date: 20130416
  Transmission Date: 20140414
  Serious: Yes (Other)
  Sender: FDA-Public Use
  Company Number: 2013P1004494

PATIENT
  Age: 59 Year
  Sex: Female

DRUGS (3)
  1. BENAZEPRIL HCL [Suspect]
     Indication: BLOOD PRESSURE INCREASED
     Route: 048
     Dates: start: 2007
  2. AMLODIPINE 5 MG (CON.) [Concomitant]
  3. HYDROCHLOROTHIAZIDE (CON.) [Concomitant]

REACTIONS (1)
  - Leukocytoclastic vasculitis [None]
